FAERS Safety Report 4562050-4 (Version None)
Quarter: 2005Q1

REPORT INFORMATION
  Report Type: 
  Country: None (occurrence: None)
  Receive Date: 20050125
  Receipt Date: 20050111
  Transmission Date: 20050727
  Serious: Yes (Hospitalization, Other)
  Sender: FDA-Public Use
  Company Number: 2004S1003357

PATIENT
  Age: 58 Year
  Sex: Female
  Weight: 72.1219 kg

DRUGS (9)
  1. PACLITAXEL [Suspect]
     Indication: BREAST CANCER
     Dosage: 330 MG, INTRAVENOUS
     Route: 042
     Dates: start: 20041103
  2. GLIPIZIDE [Concomitant]
  3. METOPROLOL TARTRATE [Concomitant]
  4. HYDROCHLOROTHIAZIDE [Concomitant]
  5. APAP TAB [Concomitant]
  6. DIPHENHYDRAMINE HCL [Concomitant]
  7. CIMETIDINE [Concomitant]
  8. DEXAMETHASONE [Concomitant]
  9. GRANISETRON [Concomitant]

REACTIONS (3)
  - ABASIA [None]
  - COORDINATION ABNORMAL [None]
  - PAIN IN EXTREMITY [None]
